FAERS Safety Report 7017948-4 (Version None)
Quarter: 2010Q3

REPORT INFORMATION
  Report Type: 
  Country: None (occurrence: None)
  Receive Date: 20100928
  Receipt Date: 20100921
  Transmission Date: 20110219
  Serious: Yes (Other)
  Sender: FDA-Public Use
  Company Number: GB-JNJCH-2010021760

PATIENT
  Age: 16 Month
  Sex: Male

DRUGS (1)
  1. BENADRYL FOR CHILDREN ALLERGY SOLUTION [Suspect]
     Indication: HYPERSENSITIVITY
     Dosage: TEXT:2.5 MILLILITERS AT 9 PM
     Route: 048

REACTIONS (4)
  - ABNORMAL BEHAVIOUR [None]
  - HALLUCINATION [None]
  - INSOMNIA [None]
  - WRONG DRUG ADMINISTERED [None]
